FAERS Safety Report 9510310 (Version 2)
Quarter: 2013Q3

REPORT INFORMATION
  Report Type: Spontaneous
  Country: US (occurrence: US)
  Receive Date: 20130909
  Receipt Date: 20130909
  Transmission Date: 20140515
  Serious: No
  Sender: FDA-Public Use
  Company Number: US-BRISTOL-MYERS SQUIBB COMPANY-17464058

PATIENT
  Sex: Female

DRUGS (1)
  1. ABILIFY [Suspect]
     Dosage: DOSE TO BE GIVEN:2MG

REACTIONS (4)
  - Arthralgia [Unknown]
  - Nightmare [Unknown]
  - Hallucination [Unknown]
  - Drug dispensing error [Unknown]
